FAERS Safety Report 12474405 (Version 2)
Quarter: 2016Q2

REPORT INFORMATION
  Report Type: Spontaneous
  Country: DE (occurrence: DE)
  Receive Date: 20160617
  Receipt Date: 20160623
  Transmission Date: 20160815
  Serious: Yes (Hospitalization)
  Sender: FDA-Public Use
  Company Number: DE-009507513-1606DEU000462

PATIENT
  Age: 86 Year
  Sex: Male

DRUGS (11)
  1. PANTOZOL [Concomitant]
     Active Substance: PANTOPRAZOLE SODIUM
     Dosage: UNK, QD
  2. DEXAMETHASONE. [Concomitant]
     Active Substance: DEXAMETHASONE
     Dosage: 1/4, QD, (TOTAL DAILY DOE 1 MG)
     Route: 048
  3. MARCUMAR [Concomitant]
     Active Substance: PHENPROCOUMON
     Dosage: FREQUENCY WAS ACCORDING TO TREATMENT PLAN
  4. NOVALGIN (ACETAMINOPHEN (+) CAFFEINE (+) PROPYPHENAZONE) [Concomitant]
     Dosage: UNK, QID, ROUTE OF ADMINISTRATION: DROPS
  5. KEYTRUDA [Suspect]
     Active Substance: PEMBROLIZUMAB
     Indication: METASTATIC MALIGNANT MELANOMA
  6. LEVETIRACETAM. [Concomitant]
     Active Substance: LEVETIRACETAM
     Dosage: UNK, BID
  7. AMPHO MORONAL [Concomitant]
     Active Substance: AMPHOTERICIN B
     Dosage: UNK, QID
  8. KEYTRUDA [Suspect]
     Active Substance: PEMBROLIZUMAB
     Indication: MALIGNANT MELANOMA STAGE IV
     Dosage: 150 MG, QOW, STRENGTH: 2MG/KG BODY WEIGHT
     Route: 042
     Dates: start: 20160302, end: 20160504
  9. PROPRANOLOL HYDROCHLORIDE. [Concomitant]
     Active Substance: PROPRANOLOL HYDROCHLORIDE
     Dosage: UNK, TID
  10. TARGIN [Concomitant]
     Active Substance: NALOXONE HYDROCHLORIDE\OXYCODONE HYDROCHLORIDE
     Dosage: STRENGTH: 20/10 UNIT UNKNOWN, BID
  11. DELIX (PHENYLPROPANOLAMINE HYDROCHLORIDE (+) PHOLCODINE (+) PROMETHAZI [Concomitant]
     Active Substance: RAMIPRIL
     Dosage: UNK, QD

REACTIONS (1)
  - Tracheobronchitis [Recovering/Resolving]

NARRATIVE: CASE EVENT DATE: 20160524
